FAERS Safety Report 7323999-2 (Version None)
Quarter: 2011Q1

REPORT INFORMATION
  Report Type: 
  Country: None (occurrence: None)
  Receive Date: 20110301
  Receipt Date: 20110224
  Transmission Date: 20110831
  Serious: Yes (Death)
  Sender: FDA-Public Use
  Company Number: NL-ASTRAZENECA-2011SE10711

PATIENT
  Sex: Male

DRUGS (10)
  1. CIPROFLOXACIN HCL [Concomitant]
  2. LOPERAMIDE-OXIDE [Concomitant]
  3. IBUPROFEN [Concomitant]
  4. BICALUTAMIDE [Concomitant]
  5. CYPROTERONE [Concomitant]
  6. NITROFURANTOIN [Concomitant]
  7. TRAMADOL HCL [Concomitant]
  8. DICLOFENAC SODIUM [Concomitant]
  9. PIPEMIDINE ACID [Concomitant]
  10. GOSERELINE [Suspect]
     Route: 058
     Dates: start: 20090601, end: 20101101

REACTIONS (1)
  - DEATH [None]
